FAERS Safety Report 7002094-6 (Version None)
Quarter: 2010Q3

REPORT INFORMATION
  Report Type: 
  Country: None (occurrence: None)
  Receive Date: 20100920
  Receipt Date: 20070723
  Transmission Date: 20110219
  Serious: Yes (Hospitalization, Other)
  Sender: FDA-Public Use
  Company Number: US-ASTRAZENECA-2007UW09619

PATIENT
  Age: 130 Month
  Sex: Male
  Weight: 51.3 kg

DRUGS (45)
  1. SEROQUEL [Suspect]
     Indication: BIPOLAR DISORDER
     Dosage: 25 MG QAM AND 150 MG QHS
     Route: 048
     Dates: start: 20050701
  2. SEROQUEL [Suspect]
     Indication: DEPRESSION
     Dosage: 25 MG QAM AND 150 MG QHS
     Route: 048
     Dates: start: 20050701
  3. SEROQUEL [Suspect]
     Indication: SCHIZOPHRENIA
     Dosage: 25 MG QAM AND 150 MG QHS
     Route: 048
     Dates: start: 20050701
  4. SEROQUEL [Suspect]
     Route: 048
     Dates: start: 20050708, end: 20050701
  5. SEROQUEL [Suspect]
     Route: 048
     Dates: start: 20050708, end: 20050701
  6. SEROQUEL [Suspect]
     Route: 048
     Dates: start: 20050708, end: 20050701
  7. SEROQUEL [Suspect]
     Dosage: 25MG TO 1000MG (FLUCTUATING)
     Route: 048
     Dates: start: 20050712, end: 20061204
  8. SEROQUEL [Suspect]
     Dosage: 25MG TO 1000MG (FLUCTUATING)
     Route: 048
     Dates: start: 20050712, end: 20061204
  9. SEROQUEL [Suspect]
     Dosage: 25MG TO 1000MG (FLUCTUATING)
     Route: 048
     Dates: start: 20050712, end: 20061204
  10. SEROQUEL [Suspect]
     Dosage: 600 MG QHS AND 300 MG QAM
     Route: 048
     Dates: start: 20060301
  11. SEROQUEL [Suspect]
     Dosage: 600 MG QHS AND 300 MG QAM
     Route: 048
     Dates: start: 20060301
  12. SEROQUEL [Suspect]
     Dosage: 600 MG QHS AND 300 MG QAM
     Route: 048
     Dates: start: 20060301
  13. SEROQUEL [Suspect]
     Route: 048
  14. SEROQUEL [Suspect]
     Route: 048
  15. SEROQUEL [Suspect]
     Route: 048
  16. SEROQUEL [Suspect]
     Route: 048
     Dates: end: 20061203
  17. SEROQUEL [Suspect]
     Route: 048
     Dates: end: 20061203
  18. SEROQUEL [Suspect]
     Route: 048
     Dates: end: 20061203
  19. RISPERDAL [Suspect]
     Indication: BIPOLAR DISORDER
     Dates: start: 20051101
  20. RISPERDAL [Suspect]
     Indication: DEPRESSION
     Dates: start: 20051101
  21. RISPERDAL [Suspect]
     Indication: SCHIZOPHRENIA
     Dates: start: 20051101
  22. RISPERDAL [Suspect]
     Dates: start: 20031212
  23. RISPERDAL [Suspect]
     Dates: start: 20031212
  24. RISPERDAL [Suspect]
     Dates: start: 20031212
  25. ZYPREXA [Concomitant]
     Indication: BIPOLAR DISORDER
     Dates: start: 20020123, end: 20050101
  26. ZYPREXA [Concomitant]
     Indication: DEPRESSION
     Dates: start: 20020123, end: 20050101
  27. ZYPREXA [Concomitant]
     Indication: SCHIZOPHRENIA
     Dates: start: 20020123, end: 20050101
  28. ZYPREXA [Concomitant]
     Dates: start: 20020123
  29. ZYPREXA [Concomitant]
     Dates: start: 20020123
  30. ZYPREXA [Concomitant]
     Dates: start: 20020123
  31. ARIPIPRAZOLE [Concomitant]
  32. CLONIDINE [Concomitant]
     Dates: end: 20060301
  33. CLONIDINE [Concomitant]
     Dosage: 0.25MG (FLUCTUATING)
     Route: 048
     Dates: start: 20040113
  34. COGENTIN [Concomitant]
     Dosage: 0.5MG TO 1 MG. TWO TIMES A DAY
     Route: 048
     Dates: start: 20040226
  35. FLONASE [Concomitant]
     Route: 045
  36. DEPAKOTE [Concomitant]
     Route: 048
     Dates: start: 20031212
  37. TOPAMAX [Concomitant]
     Route: 048
     Dates: start: 20061110, end: 20061204
  38. TEGRETOL [Concomitant]
  39. TRAZODONE HCL [Concomitant]
  40. CLONAZEPAM [Concomitant]
     Route: 048
     Dates: start: 20060712
  41. BUSPAR [Concomitant]
     Indication: ANXIETY
     Route: 048
     Dates: start: 20050905
  42. ATIVAN [Concomitant]
     Indication: AGITATION
     Dates: start: 20061206
  43. HALDOL [Concomitant]
     Dosage: 5MG TO 10MG
     Route: 048
     Dates: start: 20061206
  44. CHLORPROMAZINE [Concomitant]
     Dosage: 25MG, THREE TABS AT NIGHT
     Dates: start: 20050904
  45. PAXIL [Concomitant]
     Indication: DEPRESSION
     Route: 048
     Dates: start: 20050906

REACTIONS (5)
  - GLUCOSE TOLERANCE IMPAIRED [None]
  - NEUROLEPTIC MALIGNANT SYNDROME [None]
  - PANCREATITIS ACUTE [None]
  - SUICIDAL IDEATION [None]
  - TYPE 2 DIABETES MELLITUS [None]
